FAERS Safety Report 10947740 (Version 3)
Quarter: 2016Q1

REPORT INFORMATION
  Report Type: Spontaneous
  Country: US (occurrence: US)
  Receive Date: 20150324
  Receipt Date: 20160208
  Transmission Date: 20160525
  Serious: Yes (Other)
  Sender: FDA-Public Use
  Company Number: US-AUROBINDO-AUR-APL-2015-02505

PATIENT
  Age: 64 Year
  Sex: Female

DRUGS (4)
  1. NAPROXEN. [Suspect]
     Active Substance: NAPROXEN
     Dosage: 250 MG, UNK
  2. NAPROXEN. [Suspect]
     Active Substance: NAPROXEN
     Indication: CERVICAL RADICULOPATHY
     Dosage: UNK
     Route: 065
  3. NAPROXEN. [Suspect]
     Active Substance: NAPROXEN
     Dosage: 100 MG, UNK
  4. CYCLOBENZAPRINE [Suspect]
     Active Substance: CYCLOBENZAPRINE
     Indication: CERVICAL RADICULOPATHY
     Dosage: UNK
     Route: 065

REACTIONS (6)
  - Pyrexia [Unknown]
  - Urticaria [Unknown]
  - Serum sickness-like reaction [Recovered/Resolved]
  - Polyarthritis [Unknown]
  - Myalgia [Unknown]
  - C-reactive protein increased [Unknown]
